FAERS Safety Report 5835232-9 (Version None)
Quarter: 2008Q3

REPORT INFORMATION
  Report Type: 
  Country: None (occurrence: None)
  Receive Date: 20080806
  Receipt Date: 20080730
  Transmission Date: 20090109
  Serious: Yes (Hospitalization)
  Sender: FDA-Public Use
  Company Number: US-BAYER-200829449NA

PATIENT
  Sex: Female

DRUGS (1)
  1. AVELOX [Suspect]
     Indication: OSTEOMYELITIS
     Dosage: UNIT DOSE: 400 MG
     Route: 048

REACTIONS (7)
  - DRY MOUTH [None]
  - DYSPNOEA [None]
  - HEPATIC ENZYME INCREASED [None]
  - NAUSEA [None]
  - PAIN [None]
  - PYREXIA [None]
  - RASH [None]
